FAERS Safety Report 6086803-9 (Version None)
Quarter: 2009Q1

REPORT INFORMATION
  Report Type: 
  Country: None (occurrence: None)
  Receive Date: 20090223
  Receipt Date: 20090217
  Transmission Date: 20090719
  Serious: Yes (Death)
  Sender: FDA-Public Use
  Company Number: JP-ASTRAZENECA-2009AP01165

PATIENT
  Age: 12529 Day
  Sex: Male
  Weight: 97 kg

DRUGS (6)
  1. SEROQUEL [Suspect]
     Indication: SCHIZOPHRENIA
     Route: 048
     Dates: start: 20061031
  2. RISPERDAL [Suspect]
     Indication: SCHIZOPHRENIA
     Route: 048
     Dates: start: 20040126
  3. SEPAZON [Concomitant]
     Route: 048
     Dates: start: 20060215
  4. AKINETON [Concomitant]
     Route: 048
     Dates: start: 19940922
  5. RIVOTRIL [Concomitant]
     Route: 048
     Dates: start: 20050517
  6. ROHYPNOL [Concomitant]
     Route: 048
     Dates: start: 20051217

REACTIONS (5)
  - ANOREXIA [None]
  - DIABETIC COMA [None]
  - DYSPNOEA [None]
  - MALAISE [None]
  - RESPIRATORY ARREST [None]
